FAERS Safety Report 16667801 (Version 2)
Quarter: 2019Q3

REPORT INFORMATION
  Report Type: Spontaneous
  Country: US (occurrence: US)
  Receive Date: 20190805
  Receipt Date: 20190809
  Transmission Date: 20191004
  Serious: Yes (Death, Hospitalization, Other)
  Sender: FDA-Public Use
  Company Number: US-PFIZER INC-2019329298

PATIENT
  Age: 74 Year
  Sex: Male

DRUGS (20)
  1. TACROLIMUS. [Concomitant]
     Active Substance: TACROLIMUS
     Dosage: UNK (LOW MAINTENANCE DOSAGE)
  2. PREDNISONE. [Concomitant]
     Active Substance: PREDNISONE
     Indication: PROPHYLAXIS AGAINST GRAFT VERSUS HOST DISEASE
     Dosage: UNK
  3. GANCICLOVIR. [Concomitant]
     Active Substance: GANCICLOVIR
     Indication: PROPHYLAXIS
     Dosage: UNK
  4. SULFAMETHOXAZOLE/TRIMETHOPRIM [Suspect]
     Active Substance: SULFAMETHOXAZOLE\TRIMETHOPRIM
     Indication: PROPHYLAXIS
     Dosage: UNK
  5. PREDNISONE. [Concomitant]
     Active Substance: PREDNISONE
     Dosage: 30 MG, DAILY
  6. POSACONAZOLE [Concomitant]
     Active Substance: POSACONAZOLE
     Dosage: UNK, (RESTARTED)
  7. LEVOFLOXACIN. [Concomitant]
     Active Substance: LEVOFLOXACIN
     Indication: PNEUMONIA
     Dosage: UNK
     Route: 048
  8. ACICLOVIR [Concomitant]
     Active Substance: ACYCLOVIR
     Indication: ANTIBIOTIC THERAPY
  9. TACROLIMUS. [Concomitant]
     Active Substance: TACROLIMUS
     Indication: PROPHYLAXIS AGAINST GRAFT VERSUS HOST DISEASE
     Dosage: UNK
  10. PREDNISONE. [Concomitant]
     Active Substance: PREDNISONE
     Dosage: UNK (LOW MAINTENANCE DOSAGE)
  11. CEFEPIME [Concomitant]
     Active Substance: CEFEPIME HYDROCHLORIDE
     Indication: ROSEOLOVIRUS TEST POSITIVE
     Dosage: UNK
  12. ACICLOVIR [Concomitant]
     Active Substance: ACYCLOVIR
     Indication: ROSEOLOVIRUS TEST POSITIVE
     Dosage: UNK (HIGH DOSE)
     Route: 042
  13. CEFTRIAXONE. [Concomitant]
     Active Substance: CEFTRIAXONE
     Indication: ANTIBIOTIC THERAPY
     Dosage: UNK
  14. PREDNISONE. [Concomitant]
     Active Substance: PREDNISONE
     Dosage: UNK (INCREASED DOSE)
  15. MYCOPHENOLATE [Concomitant]
     Active Substance: MYCOPHENOLIC ACID
     Indication: GRAFT VERSUS HOST DISEASE IN LIVER
     Dosage: UNK
  16. VANCOMYCIN [Concomitant]
     Active Substance: VANCOMYCIN
     Indication: ROSEOLOVIRUS TEST POSITIVE
     Dosage: UNK
  17. VANCOMYCIN [Concomitant]
     Active Substance: VANCOMYCIN
     Indication: ANTIBIOTIC THERAPY
  18. POSACONAZOLE [Concomitant]
     Active Substance: POSACONAZOLE
     Indication: PROPHYLAXIS
     Dosage: UNK
  19. CIPROFLOXACIN. [Concomitant]
     Active Substance: CIPROFLOXACIN
     Indication: ANTIBIOTIC THERAPY
     Dosage: UNK
  20. METRONIDAZOLE. [Concomitant]
     Active Substance: METRONIDAZOLE
     Indication: ANTIBIOTIC THERAPY
     Dosage: UNK

REACTIONS (3)
  - Acanthamoeba infection [Fatal]
  - Encephalitis protozoal [Fatal]
  - Drug ineffective [Fatal]
